FAERS Safety Report 9849198 (Version 1)
Quarter: 2014Q1

REPORT INFORMATION
  Report Type: Spontaneous
  Country: US (occurrence: None)
  Receive Date: 20140127
  Receipt Date: 20140127
  Transmission Date: 20141002
  Serious: Yes (Hospitalization, Disabling, Other)
  Sender: FDA-Public Use
  Company Number: None

PATIENT
  Age: 58 Year
  Sex: Male

DRUGS (1)
  1. CHANTIX [Suspect]
     Indication: SMOKING CESSATION THERAPY
     Dosage: TAKEN BY MOUTH
     Dates: start: 20120927, end: 20121127

REACTIONS (16)
  - Visual impairment [None]
  - Headache [None]
  - Eye pain [None]
  - Visual field defect [None]
  - Confusional state [None]
  - Communication disorder [None]
  - Agitation [None]
  - Paranoia [None]
  - Feeling abnormal [None]
  - Dysgeusia [None]
  - Feeling of body temperature change [None]
  - Thirst [None]
  - Pollakiuria [None]
  - Mental status changes [None]
  - Blood glucose increased [None]
  - Convulsion [None]
